FAERS Safety Report 6464174-3 (Version None)
Quarter: 2009Q4

REPORT INFORMATION
  Report Type: 
  Country: None (occurrence: None)
  Receive Date: 20091110
  Receipt Date: 20090717
  Transmission Date: 20100525
  Serious: No
  Sender: FDA-Public Use
  Company Number: 1000007613

PATIENT
  Age: 66 Year
  Sex: Female

DRUGS (11)
  1. SAVELLA [Suspect]
     Indication: ANXIETY
     Dosage: SEE IMAGE
     Route: 048
     Dates: start: 20090708, end: 20090708
  2. SAVELLA [Suspect]
     Indication: PAIN
     Dosage: SEE IMAGE
     Route: 048
     Dates: start: 20090708, end: 20090708
  3. SAVELLA [Suspect]
     Indication: ANXIETY
     Dosage: SEE IMAGE
     Route: 048
     Dates: start: 20090709, end: 20090710
  4. SAVELLA [Suspect]
     Indication: PAIN
     Dosage: SEE IMAGE
     Route: 048
     Dates: start: 20090709, end: 20090710
  5. SAVELLA [Suspect]
     Indication: ANXIETY
     Dosage: SEE IMAGE
     Route: 048
     Dates: start: 20090711, end: 20090714
  6. SAVELLA [Suspect]
     Indication: PAIN
     Dosage: SEE IMAGE
     Route: 048
     Dates: start: 20090711, end: 20090714
  7. SAVELLA [Suspect]
     Indication: ANXIETY
     Dosage: SEE IMAGE
     Route: 048
     Dates: start: 20090715
  8. SAVELLA [Suspect]
     Indication: PAIN
     Dosage: SEE IMAGE
     Route: 048
     Dates: start: 20090715
  9. SENOKOT [Concomitant]
  10. ATIVAN [Concomitant]
  11. HALCION [Concomitant]

REACTIONS (3)
  - CONSTIPATION [None]
  - FATIGUE [None]
  - UNEVALUABLE EVENT [None]
